FAERS Safety Report 24867597 (Version 2)
Quarter: 2025Q1

REPORT INFORMATION
  Report Type: Report from Study
  Country: JO (occurrence: JO)
  Receive Date: 20250121
  Receipt Date: 20250130
  Transmission Date: 20250409
  Serious: Yes (Hospitalization)
  Sender: NOVARTIS
  Company Number: JO-002147023-NVSC2025JO008616

PATIENT
  Age: 52 Year
  Sex: Female
  Weight: 71 kg

DRUGS (6)
  1. KISQALI [Suspect]
     Active Substance: RIBOCICLIB
     Indication: Breast cancer stage IV
     Dosage: 200 MG, TID
     Route: 048
     Dates: start: 20210303
  2. ZOMETA [Suspect]
     Active Substance: ZOLEDRONIC ACID
     Indication: Product used for unknown indication
     Route: 042
     Dates: start: 20210223, end: 20240131
  3. CLINDAMYCIN [Concomitant]
     Active Substance: CLINDAMYCIN
     Indication: Infection
     Route: 065
     Dates: start: 20240527
  4. CLINDAMYCIN [Concomitant]
     Active Substance: CLINDAMYCIN
     Route: 065
     Dates: start: 20240822, end: 20240826
  5. CHLORHEXIDINE GLUCONATE [Concomitant]
     Active Substance: CHLORHEXIDINE GLUCONATE
     Indication: Oral appliance application
     Route: 065
     Dates: start: 20240822, end: 20240921
  6. TRAMADOL [Concomitant]
     Active Substance: TRAMADOL
     Indication: Analgesic therapy
     Route: 065
     Dates: start: 20240822, end: 20240921

REACTIONS (2)
  - Osteonecrosis of jaw [Recovered/Resolved]
  - Toothache [Recovered/Resolved]

NARRATIVE: CASE EVENT DATE: 20240205
